FAERS Safety Report 13389351 (Version 1)
Quarter: 2017Q1

REPORT INFORMATION
  Report Type: Spontaneous
  Country: FR (occurrence: FR)
  Receive Date: 20170331
  Receipt Date: 20170331
  Transmission Date: 20170429
  Serious: Yes (Hospitalization)
  Sender: FDA-Public Use
  Company Number: FR-009507513-1703FRA014005

PATIENT
  Age: 71 Year
  Sex: Female

DRUGS (13)
  1. RAMIPRIL. [Concomitant]
     Active Substance: RAMIPRIL
  2. LOPERAMIDE [Concomitant]
     Active Substance: LOPERAMIDE
  3. SIMVASTATIN. [Concomitant]
     Active Substance: SIMVASTATIN
  4. DOLIPRANE [Concomitant]
     Active Substance: ACETAMINOPHEN
  5. COUMADIN [Concomitant]
     Active Substance: WARFARIN SODIUM
  6. JANUVIA [Suspect]
     Active Substance: SITAGLIPTIN PHOSPHATE
     Dosage: UNK
     Route: 048
  7. ECONAZOLE [Concomitant]
     Active Substance: ECONAZOLE
  8. DYNA GLICAZIDE [Suspect]
     Active Substance: GLICLAZIDE
     Dosage: UNK
     Route: 048
  9. PREDNISONE. [Concomitant]
     Active Substance: PREDNISONE
  10. METFORMIN [Suspect]
     Active Substance: METFORMIN HYDROCHLORIDE
     Dosage: UNK
     Route: 048
  11. TRIMEBUTINE [Concomitant]
     Active Substance: TRIMEBUTINE
  12. RISEDRONATE SODIUM. [Concomitant]
     Active Substance: RISEDRONATE SODIUM
  13. INEXIUM (ESOMEPRAZOLE SODIUM) [Concomitant]
     Active Substance: ESOMEPRAZOLE SODIUM

REACTIONS (2)
  - Malaise [Recovered/Resolved]
  - Hypoglycaemia [Recovered/Resolved]

NARRATIVE: CASE EVENT DATE: 20160127
